FAERS Safety Report 14908939 (Version 1)
Quarter: 2018Q2

REPORT INFORMATION
  Report Type: Spontaneous
  Country: US (occurrence: US)
  Receive Date: 20180430
  Receipt Date: 20180430
  Transmission Date: 20180711
  Serious: Yes (Hospitalization)
  Sender: FDA-Public Use
  Company Number: None

PATIENT
  Sex: Male

DRUGS (3)
  1. STELARA [Concomitant]
     Active Substance: USTEKINUMAB
  2. PENICILLIN [Suspect]
     Active Substance: PENICILLIN
  3. KEFLEX [Suspect]
     Active Substance: CEPHALEXIN
     Indication: PSORIASIS

REACTIONS (4)
  - Stomatitis [None]
  - Rash [None]
  - Swollen tongue [None]
  - Hypersensitivity [None]
